FAERS Safety Report 5322414-8 (Version None)
Quarter: 2007Q2

REPORT INFORMATION
  Report Type: 
  Country: None (occurrence: None)
  Receive Date: 20070511
  Receipt Date: 20070504
  Transmission Date: 20071010
  Serious: Yes (Other)
  Sender: FDA-Public Use
  Company Number: MX-AVENTIS-200714030GDDC

PATIENT
  Age: 70 Year
  Sex: Male
  Weight: 62 kg

DRUGS (2)
  1. GLIMEPIRIDE [Suspect]
     Route: 048
     Dates: start: 20070301, end: 20070422
  2. METFORMIN HCL [Concomitant]
     Route: 048
     Dates: start: 20070301, end: 20070422

REACTIONS (2)
  - DIPLOPIA [None]
  - OPTIC NERVE DISORDER [None]
